FAERS Safety Report 7889013-5 (Version None)
Quarter: 2011Q4

REPORT INFORMATION
  Report Type: 
  Country: None (occurrence: None)
  Receive Date: 20111103
  Receipt Date: 20111021
  Transmission Date: 20120403
  Serious: Yes (Death, Other)
  Sender: FDA-Public Use
  Company Number: GB-PURDUE-GBR-2010-0007144

PATIENT
  Age: 84 Year
  Sex: Female

DRUGS (6)
  1. ORAMORPH SR [Concomitant]
  2. FENTANYL [Suspect]
     Indication: PRODUCT USED FOR UNKNOWN INDICATION
     Dosage: 20 MCG, UNK
     Route: 062
  3. OXYCODONE HCL [Suspect]
     Indication: PRODUCT USED FOR UNKNOWN INDICATION
     Route: 048
  4. BUTRANS [Suspect]
     Indication: PRODUCT USED FOR UNKNOWN INDICATION
     Dosage: 10 MCG, Q1H
     Route: 062
  5. OXYCODONE HCL [Suspect]
     Indication: PRODUCT USED FOR UNKNOWN INDICATION
     Route: 048
  6. BUPRENORPHINE [Suspect]
     Indication: PRODUCT USED FOR UNKNOWN INDICATION
     Dosage: 35 MCG, Q1H
     Route: 062
     Dates: start: 20090301, end: 20090501

REACTIONS (4)
  - MULTIPLE DRUG OVERDOSE [None]
  - INCORRECT DOSE ADMINISTERED [None]
  - DRUG ADMINISTRATION ERROR [None]
  - ABNORMAL BEHAVIOUR [None]
